FAERS Safety Report 4819578-9 (Version None)
Quarter: 2005Q4

REPORT INFORMATION
  Report Type: 
  Country: None (occurrence: None)
  Receive Date: 20051103
  Receipt Date: 20051019
  Transmission Date: 20060501
  Serious: Yes (Hospitalization)
  Sender: FDA-Public Use
  Company Number: SEWYE071020OCT05

PATIENT
  Sex: Female

DRUGS (8)
  1. ENBREL [Suspect]
     Indication: RHEUMATOID ARTHRITIS
     Route: 058
     Dates: start: 20041227, end: 20050809
  2. NEORAL [Concomitant]
     Indication: RHEUMATOID ARTHRITIS
     Route: 048
     Dates: start: 19970101, end: 20050829
  3. METHOTREXATE [Concomitant]
     Indication: RHEUMATOID ARTHRITIS
     Dosage: 25 MG PER WEEK
     Route: 058
     Dates: start: 19950101, end: 20050829
  4. HYDROXYCHLOROQUINE SULFATE [Concomitant]
     Indication: RHEUMATOID ARTHRITIS
     Dosage: 300 MG PER DAY 5 DAYS PER WEEK
     Route: 048
     Dates: start: 19980101, end: 20050829
  5. PREDNISONE [Concomitant]
     Indication: RHEUMATOID ARTHRITIS
     Dosage: 1/2 - 2 TABLETS PER DAY
     Route: 048
     Dates: start: 19950101
  6. METHYLPREDNISOLONE [Concomitant]
     Indication: RHEUMATOID ARTHRITIS
     Dosage: 0,4 AND 0,5 ML  (SOLOMET 40 MG/ML)
  7. MYOCRISIN [Concomitant]
     Indication: RHEUMATOID ARTHRITIS
     Dosage: DOSE REGIMEN WAS NOT SPECIFIED
     Dates: start: 20050101
  8. SALAZOPYRIN [Concomitant]
     Indication: RHEUMATOID ARTHRITIS
     Dosage: DOSE REGIMEN WAS NOT SPECIFIED
     Dates: start: 20050101

REACTIONS (6)
  - ARTHRITIS INFECTIVE [None]
  - NECK PAIN [None]
  - SKIN ULCER [None]
  - SOFT TISSUE INFECTION [None]
  - STAPHYLOCOCCAL BACTERAEMIA [None]
  - STAPHYLOCOCCAL INFECTION [None]
